FAERS Safety Report 23546152 (Version 1)
Quarter: 2024Q1

REPORT INFORMATION
  Report Type: Spontaneous
  Country: US (occurrence: US)
  Receive Date: 20240220
  Receipt Date: 20240220
  Transmission Date: 20240410
  Serious: No
  Sender: FDA-Public Use
  Company Number: US-PERRIGO-24US000183

PATIENT
  Age: 73 Year
  Sex: Female
  Weight: 72.562 kg

DRUGS (2)
  1. LORATADINE AND PSEUDOEPHEDRINE SULFATE [Suspect]
     Active Substance: LORATADINE\PSEUDOEPHEDRINE SULFATE
     Indication: Seasonal allergy
     Dosage: 1 TABLET, SINGLE
     Route: 048
     Dates: start: 20240103, end: 20240103
  2. LORATADINE AND PSEUDOEPHEDRINE SULFATE [Suspect]
     Active Substance: LORATADINE\PSEUDOEPHEDRINE SULFATE
     Indication: Nasal congestion

REACTIONS (2)
  - Malaise [Recovered/Resolved]
  - Vomiting [Recovered/Resolved]

NARRATIVE: CASE EVENT DATE: 20240103
